FAERS Safety Report 15428278 (Version 5)
Quarter: 2019Q1

REPORT INFORMATION
  Report Type: Spontaneous
  Country: JP (occurrence: JP)
  Receive Date: 20180926
  Receipt Date: 20190205
  Transmission Date: 20190417
  Serious: Yes (Death, Other)
  Sender: FDA-Public Use
  Company Number: JP-BRISTOL-MYERS SQUIBB COMPANY-BMS-2018-089330

PATIENT
  Age: 73 Year
  Sex: Male
  Weight: 45 kg

DRUGS (1)
  1. OPDIVO [Suspect]
     Active Substance: NIVOLUMAB
     Indication: METASTATIC RENAL CELL CARCINOMA
     Dosage: 140 MG, UNK
     Route: 041
     Dates: start: 20171013, end: 20180206

REACTIONS (5)
  - Cardiac arrest [Fatal]
  - Prescribed overdose [Unknown]
  - Prescribed underdose [Unknown]
  - Decreased appetite [Not Recovered/Not Resolved]
  - Malaise [Not Recovered/Not Resolved]

NARRATIVE: CASE EVENT DATE: 20171013
